FAERS Safety Report 4981819-5 (Version None)
Quarter: 2006Q2

REPORT INFORMATION
  Report Type: 
  Country: None (occurrence: None)
  Receive Date: 20060425
  Receipt Date: 20060424
  Transmission Date: 20061013
  Serious: Yes (Hospitalization)
  Sender: FDA-Public Use
  Company Number: FR-GLAXOSMITHKLINE-B0421106A

PATIENT
  Age: 80 Year
  Sex: Female

DRUGS (9)
  1. AUGMENTIN '125' [Suspect]
     Indication: BRONCHITIS ACUTE
     Route: 048
     Dates: end: 20060222
  2. LAMICTAL [Concomitant]
     Route: 065
  3. NEURONTIN [Concomitant]
     Route: 065
  4. PLAVIX [Concomitant]
     Route: 065
  5. MIANSERINE [Concomitant]
     Route: 065
  6. OMEPRAZOLE [Concomitant]
     Route: 065
  7. MOVICOL [Concomitant]
     Route: 065
  8. AMBROXOL [Concomitant]
     Route: 065
  9. PULMICORT [Concomitant]
     Route: 065

REACTIONS (3)
  - ECZEMA [None]
  - ERYTHEMA [None]
  - HYPERSENSITIVITY [None]
